FAERS Safety Report 9918447 (Version 2)
Quarter: 2014Q1

REPORT INFORMATION
  Report Type: Spontaneous
  Country: US (occurrence: US)
  Receive Date: 20140224
  Receipt Date: 20140314
  Transmission Date: 20141002
  Serious: Yes (Hospitalization)
  Sender: FDA-Public Use
  Company Number: US-BIOGENIDEC-2014BI015144

PATIENT
  Age: 51 Year
  Sex: Female

DRUGS (15)
  1. TECFIDERA [Suspect]
     Indication: MULTIPLE SCLEROSIS
     Route: 048
     Dates: start: 201308
  2. BISCOLAX [Concomitant]
  3. LEVETIRACETAM [Concomitant]
  4. OXYBUTYNIN [Concomitant]
  5. BACLOFEN [Concomitant]
  6. CLONAZEPAM [Concomitant]
  7. SERTRALINE [Concomitant]
  8. MIDODRINE [Concomitant]
  9. LAMOTRIGINE [Concomitant]
  10. LAMOTRIGINE [Concomitant]
  11. DOCUSATE [Concomitant]
  12. POLYETHYLENE GLYCOL [Concomitant]
  13. VITAMIN D3 [Concomitant]
  14. HYDROCODONE/ACETAMINOPHEN [Concomitant]
  15. TYLENOL WITH CODEINE [Concomitant]

REACTIONS (2)
  - Hallucination [Unknown]
  - Urinary tract infection [Unknown]
